FAERS Safety Report 4937155-6 (Version None)
Quarter: 2006Q1

REPORT INFORMATION
  Report Type: 
  Country: None (occurrence: None)
  Receive Date: 20060307
  Receipt Date: 20060307
  Transmission Date: 20060701
  Serious: No
  Sender: FDA-Public Use
  Company Number: None

PATIENT
  Sex: Male
  Weight: 86.637 kg

DRUGS (1)
  1. DIOVAN [Suspect]

REACTIONS (4)
  - ERYTHEMA [None]
  - OEDEMA PERIPHERAL [None]
  - PRURITUS [None]
  - RASH [None]
